FAERS Safety Report 10110860 (Version 1)
Quarter: 2014Q2

REPORT INFORMATION
  Report Type: Spontaneous
  Country: US (occurrence: None)
  Receive Date: 20140421
  Receipt Date: 20140421
  Transmission Date: 20141212
  Serious: No
  Sender: FDA-Public Use
  Company Number: AEGR000000316

PATIENT
  Age: 69 Year
  Sex: Female
  Weight: 59.4 kg

DRUGS (1)
  1. JUXTAPID [Suspect]
     Indication: PRODUCT USED FOR UNKNOWN INDICATION
     Route: 048

REACTIONS (4)
  - Proctalgia [None]
  - Anorectal discomfort [None]
  - Product used for unknown indication [None]
  - Diarrhoea [None]
